FAERS Safety Report 12331629 (Version 1)
Quarter: 2016Q2

REPORT INFORMATION
  Report Type: Spontaneous
  Country: US (occurrence: US)
  Receive Date: 20160504
  Receipt Date: 20160504
  Transmission Date: 20160815
  Serious: No
  Sender: FDA-Public Use
  Company Number: US-ROCHE-1640786

PATIENT
  Sex: Male

DRUGS (7)
  1. LIPITOR [Concomitant]
     Active Substance: ATORVASTATIN CALCIUM
  2. ESBRIET [Suspect]
     Active Substance: PIRFENIDONE
     Indication: IDIOPATHIC PULMONARY FIBROSIS
     Route: 048
     Dates: start: 20150801
  3. ASPIRIN. [Concomitant]
     Active Substance: ASPIRIN
  4. ZESTRIL [Concomitant]
     Active Substance: LISINOPRIL
  5. FISH OIL [Concomitant]
     Active Substance: FISH OIL
  6. PLAVIX [Concomitant]
     Active Substance: CLOPIDOGREL BISULFATE
  7. SYNTHROID [Concomitant]
     Active Substance: LEVOTHYROXINE SODIUM

REACTIONS (4)
  - Decreased appetite [Unknown]
  - Nausea [Unknown]
  - Rash [Unknown]
  - Fatigue [Unknown]
